FAERS Safety Report 25747710 (Version 1)
Quarter: 2025Q3

REPORT INFORMATION
  Report Type: Spontaneous
  Country: CA (occurrence: CA)
  Receive Date: 20250901
  Receipt Date: 20250901
  Transmission Date: 20251020
  Serious: Yes (Hospitalization, Other)
  Sender: SANDOZ
  Company Number: CA-002147023-PHHY2012CA109519

PATIENT
  Sex: Female

DRUGS (21)
  1. AZITHROMYCIN [Suspect]
     Active Substance: AZITHROMYCIN
     Indication: Product used for unknown indication
     Route: 065
  2. CODEINE [Suspect]
     Active Substance: CODEINE
     Indication: Product used for unknown indication
     Route: 065
  3. OCTREOTIDE ACETATE [Suspect]
     Active Substance: OCTREOTIDE ACETATE
     Indication: Carcinoid tumour of the small bowel
     Dosage: 30 MG, QMO (EVERY 4 WEEKS)
     Route: 030
     Dates: start: 20121121
  4. OCTREOTIDE ACETATE [Suspect]
     Active Substance: OCTREOTIDE ACETATE
     Dosage: 30 MG, QMO (EVERY 4 WEEKS)
     Route: 030
     Dates: start: 20161130
  5. ACETAMINOPHEN [Concomitant]
     Active Substance: ACETAMINOPHEN
     Indication: Product used for unknown indication
     Dosage: 2 DF, BID
     Route: 048
  6. BILASTINE [Concomitant]
     Active Substance: BILASTINE
     Indication: Product used for unknown indication
     Route: 065
  7. CELEXA [Concomitant]
     Active Substance: CITALOPRAM HYDROBROMIDE
     Indication: Product used for unknown indication
     Dosage: 1 DF, QD
     Route: 065
  8. CITALOPRAM [Concomitant]
     Active Substance: CITALOPRAM
     Indication: Depression
     Dosage: 0.5 DF, QD (STRENGTH: 20 MG)
     Route: 048
  9. CITALOPRAM [Concomitant]
     Active Substance: CITALOPRAM
     Dosage: UNK (STRENGH: 10 MG)
     Route: 048
  10. DENOSUMAB [Concomitant]
     Active Substance: DENOSUMAB
     Indication: Product used for unknown indication
     Route: 065
  11. DILTIAZEM [Concomitant]
     Active Substance: DILTIAZEM
     Indication: Hypertension
     Dosage: 180 MG, QD
     Route: 048
  12. FERROUS FUMARATE [Concomitant]
     Active Substance: FERROUS FUMARATE
     Indication: Product used for unknown indication
     Route: 065
  13. HALOPERIDOL [Concomitant]
     Active Substance: HALOPERIDOL
     Indication: Behaviour disorder
     Route: 065
  14. PERINDOPRIL ERBUMINE [Concomitant]
     Active Substance: PERINDOPRIL ERBUMINE
     Indication: Product used for unknown indication
     Dosage: UNK, QD
     Route: 048
  15. RISPERDAL [Concomitant]
     Active Substance: RISPERIDONE
     Indication: Product used for unknown indication
     Route: 048
  16. RISPERIDONE [Concomitant]
     Active Substance: RISPERIDONE
     Indication: Product used for unknown indication
     Route: 048
  17. SENNOSIDES A AND B [Concomitant]
     Active Substance: SENNOSIDES A AND B
     Indication: Constipation
     Dosage: 1 DF, QD
     Route: 048
  18. TAMIFLU [Concomitant]
     Active Substance: OSELTAMIVIR PHOSPHATE
     Indication: Product used for unknown indication
     Route: 048
  19. TRAZODONE HCL [Concomitant]
     Active Substance: TRAZODONE HYDROCHLORIDE
     Indication: Product used for unknown indication
     Dosage: 1 DF, QD
     Route: 048
  20. VITAMIN D [Concomitant]
     Active Substance: VITAMIN D NOS
     Indication: Product used for unknown indication
     Route: 065
  21. ZITHROMAX [Concomitant]
     Active Substance: AZITHROMYCIN DIHYDRATE
     Indication: Product used for unknown indication
     Route: 065
     Dates: start: 20170419

REACTIONS (38)
  - Cerebrovascular accident [Unknown]
  - Hip fracture [Unknown]
  - Blood pressure systolic increased [Unknown]
  - Cellulitis [Unknown]
  - Septic rash [Unknown]
  - Pulmonary congestion [Unknown]
  - Heart rate irregular [Unknown]
  - Blood pressure decreased [Unknown]
  - Heart rate decreased [Unknown]
  - Blood pressure diastolic decreased [Unknown]
  - Skin laceration [Not Recovered/Not Resolved]
  - Skin ulcer [Unknown]
  - Furuncle [Not Recovered/Not Resolved]
  - Fall [Unknown]
  - Contusion [Unknown]
  - Peripheral swelling [Unknown]
  - Pain in extremity [Unknown]
  - Body temperature decreased [Unknown]
  - Productive cough [Unknown]
  - Yellow skin [Recovered/Resolved]
  - Discomfort [Recovering/Resolving]
  - Amnesia [Unknown]
  - Joint injury [Unknown]
  - Cholelithiasis [Recovered/Resolved]
  - Injection site pain [Recovering/Resolving]
  - Blood pressure increased [Unknown]
  - Abdominal distension [Unknown]
  - Hyperhidrosis [Unknown]
  - Erythema [Unknown]
  - Malaise [Unknown]
  - Pruritus [Unknown]
  - Aggression [Unknown]
  - Diarrhoea [Unknown]
  - Abdominal pain [Recovered/Resolved]
  - Decreased appetite [Unknown]
  - Asthenia [Unknown]
  - Drug hypersensitivity [Unknown]
  - Needle issue [Unknown]

NARRATIVE: CASE EVENT DATE: 20121122
